FAERS Safety Report 14603194 (Version 1)
Quarter: 2018Q1

REPORT INFORMATION
  Report Type: Spontaneous
  Country: US (occurrence: US)
  Receive Date: 20180306
  Receipt Date: 20180306
  Transmission Date: 20180509
  Serious: Yes (Life-Threatening, Hospitalization)
  Sender: FDA-Public Use
  Company Number: US-TESARO, INC.-US-2018TSO01078

PATIENT

DRUGS (1)
  1. ZEJULA [Suspect]
     Active Substance: NIRAPARIB
     Indication: OVARIAN CANCER
     Dosage: 300 MG, UNK
     Route: 065
     Dates: start: 201802, end: 201802

REACTIONS (3)
  - Mucosal inflammation [Unknown]
  - Thrombocytopenia [Unknown]
  - Syncope [Unknown]

NARRATIVE: CASE EVENT DATE: 201802
